FAERS Safety Report 18356091 (Version 1)
Quarter: 2020Q4

REPORT INFORMATION
  Report Type: Spontaneous
  Country: US (occurrence: US)
  Receive Date: 20201007
  Receipt Date: 20201007
  Transmission Date: 20210114
  Serious: Yes (Other)
  Sender: FDA-Public Use
  Company Number: US-ALLERGAN-2038062US

PATIENT
  Sex: Female

DRUGS (1)
  1. ARMOUR THYROID [Suspect]
     Active Substance: THYROID, PORCINE
     Indication: HYPOTHYROIDISM
     Dosage: 120 MG TWICE A DAY PRESCRIBED/NOW ONLY TAKING A QUARTER OF A PILL
     Route: 048
     Dates: start: 202006

REACTIONS (14)
  - Cerebrovascular accident [Unknown]
  - Weight increased [Not Recovered/Not Resolved]
  - Therapeutic response increased [Unknown]
  - Product quality issue [Unknown]
  - Poor quality product administered [Unknown]
  - Feeling abnormal [Not Recovered/Not Resolved]
  - Product dispensing error [Unknown]
  - Intentional product misuse [Unknown]
  - Drug ineffective [Unknown]
  - Hypertension [Unknown]
  - Intentional dose omission [Unknown]
  - Off label use [Unknown]
  - Discontinued product administered [Unknown]
  - Hypothyroidism [Not Recovered/Not Resolved]

NARRATIVE: CASE EVENT DATE: 20200818
